FAERS Safety Report 5389558-6 (Version None)
Quarter: 2007Q3

REPORT INFORMATION
  Report Type: 
  Country: None (occurrence: None)
  Receive Date: 20070717
  Receipt Date: 20070706
  Transmission Date: 20080115
  Serious: Yes (Other)
  Sender: FDA-Public Use
  Company Number: GB-PURDUE-GBR_2006_0002568

PATIENT
  Age: 67 Year
  Sex: Male

DRUGS (10)
  1. DHC CONTINUS 120 MG [Suspect]
     Indication: DRUG USE FOR UNKNOWN INDICATION
     Dosage: 120 MG, TID
     Route: 065
  2. FLUOXETINE [Suspect]
     Indication: DEPRESSION
     Dosage: 20 MG, BID
     Route: 065
  3. ACOMPLIA [Suspect]
     Indication: WEIGHT CONTROL
     Dosage: 20 MG, QID
     Route: 048
     Dates: start: 20060722, end: 20060815
  4. ASPIRIN [Concomitant]
     Indication: DRUG USE FOR UNKNOWN INDICATION
     Dosage: 75 MG, DAILY
     Route: 065
  5. GLICLAZIDE [Concomitant]
     Indication: DRUG USE FOR UNKNOWN INDICATION
     Dosage: 40 MG, BID
     Route: 065
  6. METFORMIN HCL [Concomitant]
     Indication: DRUG USE FOR UNKNOWN INDICATION
     Dosage: 1 GRAM, BID
     Route: 065
  7. PERINDOPRIL [Concomitant]
     Indication: DRUG USE FOR UNKNOWN INDICATION
     Dosage: 4 MG, DAILY
     Route: 065
  8. ROSIGLITAZONE [Concomitant]
     Indication: DRUG USE FOR UNKNOWN INDICATION
     Dosage: 4 MG, BID
     Route: 065
  9. SIMVASTATIN [Concomitant]
     Indication: DRUG USE FOR UNKNOWN INDICATION
     Dosage: 20 MG, UNK
     Route: 065
  10. TILDIEM [Concomitant]
     Indication: DRUG USE FOR UNKNOWN INDICATION
     Dosage: 60 MG, TID
     Route: 065

REACTIONS (9)
  - AGITATION [None]
  - ANGER [None]
  - CONFUSIONAL STATE [None]
  - DELUSION [None]
  - DRUG WITHDRAWAL SYNDROME [None]
  - FEELING JITTERY [None]
  - HALLUCINATIONS, MIXED [None]
  - IRRITABILITY [None]
  - PSYCHOTIC DISORDER [None]
